FAERS Safety Report 24977977 (Version 3)
Quarter: 2025Q2

REPORT INFORMATION
  Report Type: Spontaneous
  Country: PL (occurrence: PL)
  Receive Date: 20250217
  Receipt Date: 20250623
  Transmission Date: 20250716
  Serious: Yes (Hospitalization, Disabling, Other)
  Sender: ELI LILLY AND COMPANY
  Company Number: PL-ELI_LILLY_AND_COMPANY-PL202502007183

PATIENT
  Age: 41 Year
  Sex: Male

DRUGS (2)
  1. MOUNJARO [Suspect]
     Active Substance: TIRZEPATIDE
     Indication: Product used for unknown indication
     Route: 058
  2. SAXENDA [Concomitant]
     Active Substance: LIRAGLUTIDE
     Indication: Product used for unknown indication
     Route: 065

REACTIONS (15)
  - Optic neuropathy [Not Recovered/Not Resolved]
  - Binocular visual dysfunction [Not Recovered/Not Resolved]
  - Blindness [Not Recovered/Not Resolved]
  - Optic nerve disorder [Not Recovered/Not Resolved]
  - Infection [Unknown]
  - Blood brain barrier defect [Unknown]
  - Type II hypersensitivity [Unknown]
  - CSF oligoclonal band present [Unknown]
  - Colour blindness [Unknown]
  - Magnetic resonance imaging head abnormal [Unknown]
  - CSF glucose increased [Unknown]
  - CSF test abnormal [Unknown]
  - Sinus congestion [Unknown]
  - Vertebral osteophyte [Unknown]
  - Intervertebral disc degeneration [Unknown]

NARRATIVE: CASE EVENT DATE: 20250128
